FAERS Safety Report 11203735 (Version 6)
Quarter: 2016Q3

REPORT INFORMATION
  Report Type: Report from Study
  Country: BR (occurrence: BR)
  Receive Date: 20150619
  Receipt Date: 20160906
  Transmission Date: 20161109
  Serious: Yes (Life-Threatening, Hospitalization, Disabling, Other)
  Sender: FDA-Public Use
  Company Number: BR-ABBVIE-15K-020-1409261-00

PATIENT
  Age: 49 Year
  Sex: Female
  Weight: 59 kg

DRUGS (17)
  1. RIVOTRIL [Concomitant]
     Active Substance: CLONAZEPAM
     Indication: DEPRESSION
     Route: 048
     Dates: start: 2001
  2. HIDANTAL [Concomitant]
     Active Substance: PHENYTOIN SODIUM
     Indication: MENTAL DISORDER
  3. SALBUTAMOL SULFATE [Concomitant]
     Active Substance: ALBUTEROL SULFATE
     Indication: ASTHMA
     Route: 048
  4. OMEPRAZOLE. [Concomitant]
     Active Substance: OMEPRAZOLE
     Indication: GASTRIC DISORDER
  5. HIDANTAL [Concomitant]
     Active Substance: PHENYTOIN SODIUM
     Indication: CEREBRAL INFARCTION
     Route: 048
     Dates: start: 201407
  6. HUMIRA [Suspect]
     Active Substance: ADALIMUMAB
     Indication: PSORIATIC ARTHROPATHY
     Route: 058
     Dates: start: 20121130
  7. METFORMIN [Concomitant]
     Active Substance: METFORMIN HYDROCHLORIDE
     Indication: DIABETES MELLITUS
     Route: 048
     Dates: start: 2007
  8. HIDANTAL [Concomitant]
     Active Substance: PHENYTOIN SODIUM
     Indication: SEIZURE
  9. RISPERIDONE. [Concomitant]
     Active Substance: RISPERIDONE
     Indication: DEPRESSION
     Route: 048
     Dates: start: 201506
  10. CLONAZEPAM. [Concomitant]
     Active Substance: CLONAZEPAM
     Indication: DEPRESSION
     Route: 048
     Dates: start: 2005
  11. AAS [Concomitant]
     Active Substance: ASPIRIN
     Indication: PROPHYLAXIS
  12. AMYTRIL [Concomitant]
     Active Substance: AMITRIPTYLINE HYDROCHLORIDE
     Indication: HEADACHE
  13. AEROLIN [Concomitant]
     Active Substance: ALBUTEROL
     Indication: ASTHMA
     Route: 048
  14. OMEPRAZOLE. [Concomitant]
     Active Substance: OMEPRAZOLE
     Indication: PROPHYLAXIS
     Route: 048
  15. AAS [Concomitant]
     Active Substance: ASPIRIN
     Indication: ANTICOAGULANT THERAPY
     Route: 048
     Dates: start: 201407
  16. AAS [Concomitant]
     Active Substance: ASPIRIN
     Indication: VENOUS OCCLUSION
  17. AMYTRIL [Concomitant]
     Active Substance: AMITRIPTYLINE HYDROCHLORIDE
     Indication: SEDATIVE THERAPY
     Route: 048
     Dates: start: 2004

REACTIONS (41)
  - Suicidal ideation [Not Recovered/Not Resolved]
  - Cerebrovascular accident [Recovered/Resolved]
  - Cerebral infarction [Recovering/Resolving]
  - Cerebral infarction [Recovered/Resolved]
  - Asthmatic crisis [Unknown]
  - Mental disorder [Not Recovered/Not Resolved]
  - Blepharitis [Not Recovered/Not Resolved]
  - Agitation [Recovered/Resolved]
  - Dyspnoea [Recovered/Resolved]
  - Dermatitis [Unknown]
  - Malaise [Unknown]
  - Seizure [Unknown]
  - Cerebrovascular accident [Recovered/Resolved]
  - Cerebral infarction [Recovered/Resolved with Sequelae]
  - Cardiac discomfort [Recovered/Resolved]
  - Arthritis [Not Recovered/Not Resolved]
  - Blood pressure increased [Unknown]
  - Speech disorder [Recovering/Resolving]
  - Localised oedema [Not Recovered/Not Resolved]
  - Nervousness [Recovered/Resolved]
  - Depression [Not Recovered/Not Resolved]
  - Cerebral infarction [Recovered/Resolved]
  - Psoriasis [Not Recovered/Not Resolved]
  - Joint swelling [Not Recovered/Not Resolved]
  - Intracranial mass [Not Recovered/Not Resolved]
  - Anxiety [Unknown]
  - Bronchitis [Recovering/Resolving]
  - Pain [Not Recovered/Not Resolved]
  - Burning sensation [Unknown]
  - Malaise [Unknown]
  - Seizure [Recovered/Resolved]
  - Chest discomfort [Recovered/Resolved]
  - Hypertension [Unknown]
  - Hypertension [Recovered/Resolved]
  - Psoriasis [Recovered/Resolved]
  - Skin haemorrhage [Unknown]
  - Suicide attempt [Unknown]
  - Mental impairment [Recovering/Resolving]
  - Cerebrovascular accident [Recovered/Resolved]
  - Memory impairment [Not Recovered/Not Resolved]
  - Psoriasis [Not Recovered/Not Resolved]

NARRATIVE: CASE EVENT DATE: 201305
